FAERS Safety Report 4814355-7 (Version None)
Quarter: 2005Q4

REPORT INFORMATION
  Report Type: 
  Country: None (occurrence: None)
  Receive Date: 20051027
  Receipt Date: 20051027
  Transmission Date: 20060501
  Serious: Yes (Other)
  Sender: FDA-Public Use
  Company Number: None

PATIENT
  Age: 69 Year
  Sex: Male
  Weight: 80.3 kg

DRUGS (4)
  1. MOXIFLOXACIN [Suspect]
     Indication: PNEUMONIA
     Dosage: 400MG  DAILY IV    ONCE
     Route: 042
  2. SODIUM NITROPRUSSIDE [Concomitant]
  3. PANTOPRAZOLE [Concomitant]
  4. LORAZEPAM [Concomitant]

REACTIONS (1)
  - ELECTROCARDIOGRAM QT CORRECTED INTERVAL PROLONGED [None]
